FAERS Safety Report 4465095-8 (Version None)
Quarter: 2004Q3

REPORT INFORMATION
  Report Type: 
  Country: None (occurrence: None)
  Receive Date: 20040929
  Receipt Date: 20040917
  Transmission Date: 20050211
  Serious: Yes (Hospitalization)
  Sender: FDA-Public Use
  Company Number: 2004234422US

PATIENT
  Age: 18 Day
  Sex: Male

DRUGS (1)
  1. PROSTIN VR PEDIATRIC [Suspect]
     Indication: PATENT DUCTUS ARTERIOSUS
     Dosage: PARENTERAL
     Route: 051
     Dates: start: 20040903, end: 20040916

REACTIONS (3)
  - CARDIAC FAILURE [None]
  - DRUG INEFFECTIVE [None]
  - DUCTUS ARTERIOSUS PREMATURE CLOSURE [None]
